FAERS Safety Report 10905022 (Version 1)
Quarter: 2015Q1

REPORT INFORMATION
  Report Type: Spontaneous
  Country: US (occurrence: None)
  Receive Date: 20150107
  Receipt Date: 20150107
  Transmission Date: 20150721
  Serious: No
  Sender: FDA-Public Use
  Company Number: 2014TUS013018

PATIENT
  Age: 43 Year
  Sex: Female
  Weight: 88 kg

DRUGS (3)
  1. CYTOMEL (LIOTHYRONINE SODIUM) [Concomitant]
  2. CONTRAVE [Suspect]
     Active Substance: BUPROPION HYDROCHLORIDE\NALTREXONE HYDROCHLORIDE
     Indication: OBESITY
     Dosage: 4 DOSES, UNK STARTER PACK
     Route: 048
     Dates: start: 20141117, end: 20141126
  3. HCTZ (HYDROCHLOROTHIAZIDE) [Concomitant]
     Active Substance: HYDROCHLOROTHIAZIDE

REACTIONS (4)
  - Anxiety [None]
  - Vertigo [None]
  - Hallucination [None]
  - Blood potassium decreased [None]

NARRATIVE: CASE EVENT DATE: 20141126
